FAERS Safety Report 9550553 (Version 2)
Quarter: 2014Q2

REPORT INFORMATION
  Report Type: Spontaneous
  Country: US (occurrence: US)
  Receive Date: 20130924
  Receipt Date: 20140402
  Transmission Date: 20141212
  Serious: No
  Sender: FDA-Public Use
  Company Number: US-SANOFI-AVENTIS-2013SA032753

PATIENT
  Age: 21 Year
  Sex: Male

DRUGS (2)
  1. AUBAGIO [Suspect]
     Indication: MULTIPLE SCLEROSIS
     Dosage: PRODUCT STOPPED : EITHER ON 09SEP2013 OR 19SEP2013
     Route: 048
     Dates: start: 20130213
  2. AUBAGIO [Suspect]
     Indication: MULTIPLE SCLEROSIS
     Dosage: PRODUCT STOPPED : EITHER ON 09SEP2013 OR 19SEP2013
     Route: 048
     Dates: start: 20130213

REACTIONS (7)
  - Fatigue [Not Recovered/Not Resolved]
  - Visual impairment [Not Recovered/Not Resolved]
  - Hypoaesthesia oral [Recovering/Resolving]
  - Dizziness [Not Recovered/Not Resolved]
  - Muscular weakness [Unknown]
  - Multiple sclerosis [Not Recovered/Not Resolved]
  - Gait disturbance [Recovering/Resolving]
